FAERS Safety Report 16483636 (Version 4)
Quarter: 2019Q3

REPORT INFORMATION
  Report Type: Spontaneous
  Country: GB (occurrence: GB)
  Receive Date: 20190627
  Receipt Date: 20190822
  Transmission Date: 20191004
  Serious: Yes (Hospitalization, Other)
  Sender: FDA-Public Use
  Company Number: GB-TEVA-2019-GB-1066115

PATIENT
  Sex: Female

DRUGS (7)
  1. VENTOLIN 100 MICROGRAMS/DOSE EVOHALER [Concomitant]
  2. ACTAVIS LEVOFLOXACIN [Suspect]
     Active Substance: LEVOFLOXACIN
     Indication: LOWER RESPIRATORY TRACT INFECTION
     Dosage: 1000 MILLIGRAM DAILY;
     Route: 048
     Dates: start: 20190528, end: 20190606
  3. TILDIEM RETARD 120MG [Concomitant]
  4. FOSTAIR [Concomitant]
     Active Substance: BECLOMETHASONE\FORMOTEROL
     Dosage: 200 MICROGRAMS/DOSE/6 MICROGRAMS/DOSE INHALER
  5. ADCAL-D3 CHEWABLE TABLETS TUTTI FRUTTI [Concomitant]
  6. OMEPRAZOLE. [Concomitant]
     Active Substance: OMEPRAZOLE
  7. AVAMYS 27.5 [Concomitant]

REACTIONS (9)
  - Tendon disorder [Unknown]
  - Tendon injury [Not Recovered/Not Resolved]
  - Tendon pain [Not Recovered/Not Resolved]
  - Pain [Unknown]
  - Adverse drug reaction [Not Recovered/Not Resolved]
  - Mobility decreased [Unknown]
  - Swelling [Not Recovered/Not Resolved]
  - Tendinous contracture [Not Recovered/Not Resolved]
  - Tendonitis [Not Recovered/Not Resolved]
